FAERS Safety Report 6532787-6 (Version None)
Quarter: 2010Q1

REPORT INFORMATION
  Report Type: 
  Country: None (occurrence: None)
  Receive Date: 20100111
  Receipt Date: 20091231
  Transmission Date: 20100710
  Serious: Yes (Hospitalization, Other)
  Sender: FDA-Public Use
  Company Number: PHEH2009US11665

PATIENT
  Sex: Female
  Weight: 54.422 kg

DRUGS (8)
  1. EXJADE [Suspect]
     Indication: CHRONIC LYMPHOCYTIC LEUKAEMIA
     Dosage: 1500 MG, UNK
     Route: 048
     Dates: end: 20090801
  2. EXJADE [Suspect]
     Dosage: 1000 MG, QD
     Route: 048
  3. LEVAQUIN [Concomitant]
     Indication: PNEUMONIA
     Dosage: UNK
     Dates: start: 20090713
  4. ZOVIRAX [Concomitant]
     Dosage: Q
  5. MUCINEX [Concomitant]
     Dosage: UNK
  6. METOPROLOL [Concomitant]
     Dosage: 25 MG, QD
  7. RITUXAN [Concomitant]
  8. SOLU-MEDROL [Concomitant]

REACTIONS (17)
  - ATRIAL FIBRILLATION [None]
  - CANDIDA PNEUMONIA [None]
  - DIARRHOEA [None]
  - HAEMOPTYSIS [None]
  - HYPOMAGNESAEMIA [None]
  - LUNG INFECTION PSEUDOMONAL [None]
  - LUNG INFILTRATION [None]
  - LYMPHADENOPATHY [None]
  - OEDEMA PERIPHERAL [None]
  - PAIN [None]
  - PRODUCTIVE COUGH [None]
  - PYREXIA [None]
  - RALES [None]
  - RESPIRATORY DISTRESS [None]
  - UMBILICAL HERNIA [None]
  - WEIGHT DECREASED [None]
  - WHEEZING [None]
